FAERS Safety Report 12915966 (Version 1)
Quarter: 2016Q4

REPORT INFORMATION
  Report Type: Spontaneous
  Country: US (occurrence: US)
  Receive Date: 20161107
  Receipt Date: 20161107
  Transmission Date: 20170207
  Serious: No
  Sender: FDA-Public Use
  Company Number: US-ACCORD-043051

PATIENT
  Sex: Male

DRUGS (1)
  1. ESCITALOPRAM [Suspect]
     Active Substance: ESCITALOPRAM OXALATE
     Indication: ANXIETY
     Dosage: STARTED AT 10 MG,?20 MG PILL TO REACH PRESCRIBED DOSES

REACTIONS (3)
  - Drug ineffective [Unknown]
  - Headache [Unknown]
  - Anger [Unknown]
